FAERS Safety Report 5663363-5 (Version None)
Quarter: 2008Q1

REPORT INFORMATION
  Report Type: 
  Country: None (occurrence: None)
  Receive Date: 20080313
  Receipt Date: 20080307
  Transmission Date: 20080703
  Serious: Yes (Hospitalization)
  Sender: FDA-Public Use
  Company Number: US-ELI_LILLY_AND_COMPANY-US200803001574

PATIENT
  Sex: Male

DRUGS (11)
  1. BYETTA [Suspect]
     Dosage: 5 UG, 2/D
     Route: 058
     Dates: start: 20080201, end: 20080301
  2. BYETTA [Suspect]
     Dosage: 10 UG, 2/D
     Route: 058
     Dates: start: 20080301
  3. GLYBURIDE [Concomitant]
     Indication: DIABETES MELLITUS
     Dosage: UNK, UNKNOWN
  4. OMEGA-3 [Concomitant]
     Indication: BLOOD CHOLESTEROL
     Dosage: UNK, UNKNOWN
  5. VYTORIN [Concomitant]
     Dosage: UNK, UNKNOWN
  6. ASPIRIN [Concomitant]
     Dosage: UNK, UNKNOWN
  7. TRICOR [Concomitant]
     Dosage: UNK, UNKNOWN
  8. NEXIUM [Concomitant]
     Dosage: UNK, UNKNOWN
  9. PLAVIX [Concomitant]
     Dosage: UNK, UNKNOWN
  10. SPIRIVA [Concomitant]
     Indication: ASTHMA
     Dosage: UNK, UNKNOWN
     Route: 055
  11. ADVAIR DISKUS 100/50 [Concomitant]
     Indication: ASTHMA
     Dosage: UNK, UNKNOWN
     Route: 055

REACTIONS (3)
  - ASTHMA [None]
  - BLOOD GLUCOSE INCREASED [None]
  - DYSPNOEA [None]
